FAERS Safety Report 9709991 (Version 1)
Quarter: 2013Q4

REPORT INFORMATION
  Report Type: Spontaneous
  Country: US (occurrence: US)
  Receive Date: 20131126
  Receipt Date: 20131126
  Transmission Date: 20140711
  Serious: No
  Sender: FDA-Public Use
  Company Number: US-BAYER-2013-140500

PATIENT
  Age: 30 Year
  Sex: Female

DRUGS (1)
  1. MAGNEVIST [Suspect]
     Indication: IMAGING PROCEDURE
     Dosage: 13 ML, ONCE
     Route: 042
     Dates: start: 20131114, end: 20131114

REACTIONS (6)
  - Pruritus [None]
  - Rash [None]
  - Cough [None]
  - Throat irritation [None]
  - Eye pruritus [None]
  - Ear pruritus [None]
